FAERS Safety Report 7055004-X (Version None)
Quarter: 2010Q4

REPORT INFORMATION
  Report Type: 
  Country: None (occurrence: None)
  Receive Date: 20101021
  Receipt Date: 20101004
  Transmission Date: 20110411
  Serious: Yes (Hospitalization)
  Sender: FDA-Public Use
  Company Number: US-BAYER-201011115NA

PATIENT
  Age: 20 Year
  Sex: Female
  Weight: 59 kg

DRUGS (5)
  1. YASMIN [Suspect]
     Indication: CONTRACEPTION
     Route: 048
     Dates: start: 20050101, end: 20080101
  2. EXCEDRIN (MIGRAINE) [Concomitant]
  3. ASCORBIC ACID [Concomitant]
  4. MOTRIN [Concomitant]
  5. AZITHROMYCIN [Concomitant]
     Indication: PHARYNGITIS STREPTOCOCCAL

REACTIONS (4)
  - ABDOMINAL PAIN UPPER [None]
  - CHOLECYSTITIS CHRONIC [None]
  - CHOLELITHIASIS [None]
  - VOMITING [None]
